FAERS Safety Report 17267135 (Version 1)
Quarter: 2019Q4

REPORT INFORMATION
  Report Type: Spontaneous
  Country: US (occurrence: US)
  Receive Date: 20191219
  Receipt Date: 20191219
  Transmission Date: 20200122
  Serious: No
  Sender: FDA-Public Use
  Company Number: None

PATIENT
  Sex: Female

DRUGS (1)
  1. BCG VACCINE [Suspect]
     Active Substance: BCG VACCINE

REACTIONS (2)
  - Off label use [None]
  - Product dose omission [None]
